FAERS Safety Report 25389906 (Version 2)
Quarter: 2025Q2

REPORT INFORMATION
  Report Type: Spontaneous
  Country: FR (occurrence: None)
  Receive Date: 20250603
  Receipt Date: 20250617
  Transmission Date: 20250716
  Serious: Yes (Hospitalization)
  Sender: INCYTE
  Company Number: FR-002147023-NVSC2025FR087376

PATIENT
  Age: 77 Year

DRUGS (1)
  1. RUXOLITINIB [Suspect]
     Active Substance: RUXOLITINIB
     Indication: Myelofibrosis
     Dosage: 10 MG, BID (ONE TABLET  MORNING  AND  EVENING)
     Route: 065

REACTIONS (6)
  - Cognitive disorder [Unknown]
  - Insomnia [Unknown]
  - Memory impairment [Unknown]
  - Pulmonary embolism [Unknown]
  - Thrombosis [Unknown]
  - Gait disturbance [Unknown]
